FAERS Safety Report 6407398-3 (Version None)
Quarter: 2009Q4

REPORT INFORMATION
  Report Type: 
  Country: None (occurrence: None)
  Receive Date: 20091020
  Receipt Date: 20091012
  Transmission Date: 20100525
  Serious: Yes (Hospitalization)
  Sender: FDA-Public Use
  Company Number: BE-ABBOTT-09P-013-0582047-00

PATIENT
  Sex: Female

DRUGS (6)
  1. HUMIRA [Suspect]
     Indication: PSORIATIC ARTHROPATHY
  2. ASAFLOW [Concomitant]
     Indication: DRUG USE FOR UNKNOWN INDICATION
  3. INSULIN [Concomitant]
     Indication: DRUG USE FOR UNKNOWN INDICATION
  4. ZESTRIL [Concomitant]
     Indication: DRUG USE FOR UNKNOWN INDICATION
  5. BIOFENAC [Concomitant]
     Indication: DRUG USE FOR UNKNOWN INDICATION
  6. METFOMAX [Concomitant]
     Indication: DRUG USE FOR UNKNOWN INDICATION

REACTIONS (1)
  - CEREBROVASCULAR ACCIDENT [None]
